FAERS Safety Report 17262764 (Version 2)
Quarter: 2020Q1

REPORT INFORMATION
  Report Type: Spontaneous
  Country: SK (occurrence: SK)
  Receive Date: 20200113
  Receipt Date: 20200129
  Transmission Date: 20200409
  Serious: Yes (Death, Life-Threatening, Hospitalization, Other)
  Sender: FDA-Public Use
  Company Number: NVSC2020SK005016

PATIENT
  Age: 39 Year
  Sex: Male

DRUGS (3)
  1. VORICONAZOLE. [Suspect]
     Active Substance: VORICONAZOLE
     Indication: MENINGITIS CRYPTOCOCCAL
  2. VORICONAZOLE. [Suspect]
     Active Substance: VORICONAZOLE
     Indication: ENCEPHALITIS
     Dosage: UNK
     Route: 065
     Dates: start: 2018, end: 2018
  3. VORICONAZOLE. [Suspect]
     Active Substance: VORICONAZOLE
     Indication: CRYPTOCOCCOSIS

REACTIONS (1)
  - Condition aggravated [Fatal]

NARRATIVE: CASE EVENT DATE: 2018
